FAERS Safety Report 4636601-5 (Version None)
Quarter: 2005Q2

REPORT INFORMATION
  Report Type: 
  Country: None (occurrence: None)
  Receive Date: 20050328
  Receipt Date: 20041208
  Transmission Date: 20051028
  Serious: No
  Sender: FDA-Public Use
  Company Number: USA041285723

PATIENT
  Age: 30 Year
  Sex: Female

DRUGS (2)
  1. ZYPREXA [Suspect]
     Indication: THINKING ABNORMAL
     Dosage: 2.5 MG
     Dates: start: 20041101
  2. STRATTERA [Suspect]
     Indication: DISTURBANCE IN ATTENTION
     Dosage: 18 MG DAY
     Dates: start: 20040901

REACTIONS (1)
  - WEIGHT INCREASED [None]
